FAERS Safety Report 12305211 (Version 1)
Quarter: 2016Q2

REPORT INFORMATION
  Report Type: Spontaneous
  Country: JP (occurrence: JP)
  Receive Date: 20160426
  Receipt Date: 20160426
  Transmission Date: 20160815
  Serious: Yes (Hospitalization, Other)
  Sender: FDA-Public Use
  Company Number: JP-CIPLA LTD.-2016JP03827

PATIENT

DRUGS (2)
  1. LANSOPRAZOLE. [Suspect]
     Active Substance: LANSOPRAZOLE
     Indication: ARTHRALGIA
     Dosage: 15 MG/DAY
     Route: 065
  2. MELOXICAM. [Suspect]
     Active Substance: MELOXICAM
     Indication: ARTHRALGIA
     Dosage: 10 MG/DAY
     Route: 065

REACTIONS (12)
  - Chronic gastritis [Unknown]
  - Anaemia [Unknown]
  - Hiatus hernia [Unknown]
  - Large intestinal ulcer [Recovered/Resolved]
  - Gastrointestinal haemorrhage [Unknown]
  - Pyrexia [Unknown]
  - Diarrhoea haemorrhagic [Unknown]
  - Small intestinal stenosis [Recovered/Resolved]
  - Shock [Unknown]
  - Abdominal tenderness [Recovered/Resolved]
  - Gastrointestinal disorder [Recovered/Resolved]
  - Helicobacter infection [Recovered/Resolved]
